FAERS Safety Report 14723701 (Version 2)
Quarter: 2018Q2

REPORT INFORMATION
  Report Type: Spontaneous
  Country: CA (occurrence: CA)
  Receive Date: 20180405
  Receipt Date: 20180516
  Transmission Date: 20180711
  Serious: Yes (Hospitalization)
  Sender: FDA-Public Use
  Company Number: CA-CELGENEUS-CAN-20180310467

PATIENT
  Age: 60 Year
  Sex: Female

DRUGS (11)
  1. LORAZEPAM. [Concomitant]
     Active Substance: LORAZEPAM
     Indication: INSOMNIA
     Route: 065
     Dates: start: 201712
  2. HALOPERIDOL DECANOATE. [Concomitant]
     Active Substance: HALOPERIDOL DECANOATE
     Indication: NAUSEA
     Route: 065
     Dates: start: 20180216, end: 20180320
  3. NAPROXEN. [Concomitant]
     Active Substance: NAPROXEN
     Indication: ABDOMINAL PAIN
     Route: 065
     Dates: start: 20180226, end: 20180311
  4. CELECOXIB. [Concomitant]
     Active Substance: CELECOXIB
     Indication: ABDOMINAL PAIN
     Route: 065
     Dates: start: 20180312
  5. GEMCITABINE [Suspect]
     Active Substance: GEMCITABINE\GEMCITABINE HYDROCHLORIDE
     Indication: PANCREATIC CARCINOMA
     Dosage: 1460 MILLIGRAM
     Route: 041
     Dates: start: 20180307
  6. ABRAXANE [Suspect]
     Active Substance: PACLITAXEL
     Indication: PANCREATIC CARCINOMA
     Dosage: 182.5 MILLIGRAM
     Route: 041
     Dates: start: 20180307, end: 20180307
  7. PREGABALIN. [Concomitant]
     Active Substance: PREGABALIN
     Indication: ABDOMINAL PAIN
     Route: 065
     Dates: start: 201712
  8. DOCUSATE [Concomitant]
     Active Substance: DOCUSATE
     Indication: CONSTIPATION PROPHYLAXIS
     Route: 065
     Dates: start: 20180118
  9. PARACETAMOL [Concomitant]
     Active Substance: ACETAMINOPHEN
     Indication: ABDOMINAL PAIN
     Route: 065
     Dates: start: 20180225
  10. FENTANYL. [Concomitant]
     Active Substance: FENTANYL
     Indication: ABDOMINAL PAIN
     Route: 062
     Dates: start: 20180118
  11. DALTEPARIN SODIUM [Concomitant]
     Active Substance: DALTEPARIN SODIUM
     Indication: THROMBOSIS
     Route: 065
     Dates: start: 20180216

REACTIONS (1)
  - Bone pain [Recovered/Resolved]

NARRATIVE: CASE EVENT DATE: 20180313
